FAERS Safety Report 5758694-4 (Version None)
Quarter: 2008Q2

REPORT INFORMATION
  Report Type: 
  Country: None (occurrence: None)
  Receive Date: 20080603
  Receipt Date: 20080603
  Transmission Date: 20081010
  Serious: Yes (Hospitalization)
  Sender: FDA-Public Use
  Company Number: None

PATIENT
  Sex: Female
  Weight: 69.6 kg

DRUGS (1)
  1. CYTARABINE [Suspect]
     Dosage: 900 MG
     Dates: end: 20050703

REACTIONS (3)
  - FULL BLOOD COUNT DECREASED [None]
  - LUNG INFILTRATION [None]
  - PULMONARY HAEMORRHAGE [None]
